FAERS Safety Report 9830151 (Version 1)
Quarter: 2014Q1

REPORT INFORMATION
  Report Type: Spontaneous
  Country: US (occurrence: US)
  Receive Date: 20140120
  Receipt Date: 20140120
  Transmission Date: 20141002
  Serious: Yes (Other)
  Sender: FDA-Public Use
  Company Number: US-RB-062210-14

PATIENT
  Age: 66 Year
  Sex: Male

DRUGS (1)
  1. DELSYM CHILD GRAPE [Suspect]
     Indication: PRODUCT USED FOR UNKNOWN INDICATION
     Dosage: 10 ML DOSE ON 09-JAN-2014 AT ABOUT 9P.M AND TOOK A SECOND DOSE AT 7A.M., ON 10-JAN-2014.
     Route: 048
     Dates: start: 20140109

REACTIONS (2)
  - Restlessness [Recovered/Resolved]
  - Inappropriate schedule of drug administration [Recovered/Resolved]
